FAERS Safety Report 6941889-1 (Version None)
Quarter: 2010Q3

REPORT INFORMATION
  Report Type: 
  Country: None (occurrence: None)
  Receive Date: 20100826
  Receipt Date: 20100722
  Transmission Date: 20110219
  Serious: No
  Sender: FDA-Public Use
  Company Number: US-PFIZER INC-2010092420

PATIENT
  Sex: Female
  Weight: 40 kg

DRUGS (2)
  1. SERTRALINE HYDROCHLORIDE [Suspect]
     Indication: DEPRESSION
     Dosage: 50 MG, QD
  2. CALCITONIN-SALMON [Suspect]
     Indication: OSTEOPOROSIS
     Dosage: UNK MG, UNK

REACTIONS (2)
  - ALOPECIA [None]
  - PRURITUS [None]
